FAERS Safety Report 17505503 (Version 2)
Quarter: 2020Q2

REPORT INFORMATION
  Report Type: Spontaneous
  Country: ES (occurrence: ES)
  Receive Date: 20200305
  Receipt Date: 20200608
  Transmission Date: 20200713
  Serious: Yes (Death, Life-Threatening, Other)
  Sender: FDA-Public Use
  Company Number: ES-009507513-2003ESP001094

PATIENT
  Age: 66 Year
  Sex: Male
  Weight: 55 kg

DRUGS (7)
  1. CLOTRIMAZOLE. [Concomitant]
     Active Substance: CLOTRIMAZOLE
     Indication: ANTIFUNGAL PROPHYLAXIS
     Dosage: 960 MILLIGRAM (MONDAY, WEDNESDAY, FRIDAY)
     Dates: start: 20190425, end: 20190514
  2. RANITIDINE. [Concomitant]
     Active Substance: RANITIDINE
     Dosage: 150 MILLIGRAM, QD
     Route: 048
     Dates: start: 20190425, end: 20190514
  3. FIDAXOMICIN [Suspect]
     Active Substance: FIDAXOMICIN
     Dosage: UNK
     Route: 048
     Dates: start: 2019
  4. VANCOMYCIN [Concomitant]
     Active Substance: VANCOMYCIN
     Indication: CLOSTRIDIUM DIFFICILE COLITIS
     Dosage: 500 MILLIGRAM, QD
     Route: 048
     Dates: start: 20190426, end: 20190514
  5. ACYCLOVIR. [Concomitant]
     Active Substance: ACYCLOVIR
     Indication: PROPHYLAXIS
     Dosage: 800 MILLIGRAM, QD
     Route: 048
     Dates: start: 20190425, end: 20190514
  6. POSACONAZOLE [Concomitant]
     Active Substance: POSACONAZOLE
     Indication: ANTIFUNGAL PROPHYLAXIS
     Dosage: 300 MILLIGRAM, QD
     Route: 048
     Dates: start: 20190425, end: 20190514
  7. ZINPLAVA [Suspect]
     Active Substance: BEZLOTOXUMAB
     Indication: CLOSTRIDIUM DIFFICILE INFECTION
     Dosage: 610 MILLIGRAM, ONCE
     Route: 042
     Dates: start: 20190426, end: 20190426

REACTIONS (5)
  - Respiratory failure [Fatal]
  - Infection [Fatal]
  - Chronic obstructive pulmonary disease [Fatal]
  - Septic shock [Fatal]
  - Febrile neutropenia [Unknown]

NARRATIVE: CASE EVENT DATE: 201905
